FAERS Safety Report 5223053-X (Version None)
Quarter: 2007Q1

REPORT INFORMATION
  Report Type: 
  Country: None (occurrence: None)
  Receive Date: 20070129
  Receipt Date: 20070123
  Transmission Date: 20070707
  Serious: Yes (Hospitalization)
  Sender: FDA-Public Use
  Company Number: JP-MERCK-0701USA04287

PATIENT
  Age: 79 Year
  Sex: Female

DRUGS (5)
  1. COZAAR [Concomitant]
     Indication: HYPERTENSION
     Route: 048
     Dates: end: 20070108
  2. COZAAR [Concomitant]
     Route: 065
     Dates: start: 20070112
  3. HYZAAR [Suspect]
     Indication: HYPERTENSION
     Route: 048
     Dates: start: 20070109, end: 20070112
  4. COVERSYL (PERINDOPRIL ERBUMINE) [Concomitant]
     Indication: HYPERTENSION
     Route: 048
     Dates: end: 20070108
  5. COVERSYL (PERINDOPRIL ERBUMINE) [Concomitant]
     Route: 065
     Dates: start: 20070112

REACTIONS (1)
  - SHOCK [None]
